FAERS Safety Report 12643627 (Version 1)
Quarter: 2016Q3

REPORT INFORMATION
  Report Type: Spontaneous
  Country: US (occurrence: US)
  Receive Date: 20160811
  Receipt Date: 20160811
  Transmission Date: 20161109
  Serious: No
  Sender: FDA-Public Use
  Company Number: US-BIOGEN-2016BI00277175

PATIENT
  Sex: Female

DRUGS (2)
  1. TYSABRI [Suspect]
     Active Substance: NATALIZUMAB
     Indication: MULTIPLE SCLEROSIS
     Dates: start: 20120911, end: 20140617
  2. TYSABRI [Suspect]
     Active Substance: NATALIZUMAB
     Dates: start: 20150609

REACTIONS (3)
  - Gait disturbance [Unknown]
  - Mobility decreased [Unknown]
  - Multiple sclerosis [Unknown]
